FAERS Safety Report 6998285-0 (Version None)
Quarter: 2010Q3

REPORT INFORMATION
  Report Type: 
  Country: None (occurrence: None)
  Receive Date: 20100920
  Receipt Date: 20090921
  Transmission Date: 20110219
  Serious: No
  Sender: FDA-Public Use
  Company Number: US-ASTRAZENECA-2009SE14365

PATIENT
  Sex: Female
  Weight: 90.7 kg

DRUGS (3)
  1. SEROQUEL [Suspect]
     Route: 048
  2. GEODON [Concomitant]
  3. CELEXA [Concomitant]

REACTIONS (4)
  - HEADACHE [None]
  - NUCLEAR MAGNETIC RESONANCE IMAGING ABNORMAL [None]
  - PRURITUS [None]
  - WEIGHT INCREASED [None]
